FAERS Safety Report 4604189-0 (Version None)
Quarter: 2005Q1

REPORT INFORMATION
  Report Type: 
  Country: None (occurrence: None)
  Receive Date: 20050308
  Receipt Date: 20050308
  Transmission Date: 20050727
  Serious: Yes (Life-Threatening)
  Sender: FDA-Public Use
  Company Number: None

PATIENT
  Age: 61 Year
  Sex: Female
  Weight: 62 kg

DRUGS (1)
  1. EPIRUBICIN [Suspect]
     Indication: BREAST NEOPLASM
     Dosage: 120 MG IV PUSH
     Route: 040
     Dates: start: 20041209

REACTIONS (4)
  - CHILLS [None]
  - FEBRILE NEUTROPENIA [None]
  - HEADACHE [None]
  - INSOMNIA [None]
